FAERS Safety Report 10864862 (Version 3)
Quarter: 2015Q2

REPORT INFORMATION
  Report Type: Report from Study
  Country: BR (occurrence: BR)
  Receive Date: 20150224
  Receipt Date: 20150409
  Transmission Date: 20150821
  Serious: Yes (Other)
  Sender: FDA-Public Use
  Company Number: BR-GLAXOSMITHKLINE-BR2015GSK023439

PATIENT
  Sex: Female
  Weight: 85 kg

DRUGS (1)
  1. BELIMUMAB [Suspect]
     Active Substance: BELIMUMAB
     Indication: SYSTEMIC LUPUS ERYTHEMATOSUS
     Dosage: UNK

REACTIONS (2)
  - Renal impairment [Not Recovered/Not Resolved]
  - Diabetes mellitus [Unknown]
